FAERS Safety Report 9370556 (Version 2)
Quarter: 2013Q2

REPORT INFORMATION
  Report Type: Spontaneous
  Country: FR (occurrence: FR)
  Receive Date: 20130626
  Receipt Date: 20130630
  Transmission Date: 20140414
  Serious: Yes (Death, Hospitalization)
  Sender: FDA-Public Use
  Company Number: FR-TEVA-415346ISR

PATIENT
  Age: 72 Year
  Sex: Male

DRUGS (5)
  1. FUROSEMIDE TEVA 40 MG [Suspect]
     Dosage: 60 MILLIGRAM DAILY; 40 MG: MORNING, 20 MG :NOON. DIVISIBLE TABLETS
     Route: 048
     Dates: start: 20130518
  2. JANUMET [Concomitant]
     Dosage: 2 DOSAGE FORMS DAILY;
     Route: 048
     Dates: end: 201305
  3. PREVISCAN 20 MG [Concomitant]
     Dosage: 15 MICROGRAM DAILY; SCORED TABLET, AT NIGHT
     Route: 048
     Dates: end: 201305
  4. ALDACTONE [Concomitant]
     Route: 048
     Dates: end: 201305
  5. LERCAN [Concomitant]
     Route: 048
     Dates: end: 201305

REACTIONS (11)
  - Cardio-respiratory arrest [Fatal]
  - Acute pulmonary oedema [Fatal]
  - Altered state of consciousness [Recovered/Resolved]
  - Somnolence [Not Recovered/Not Resolved]
  - Pneumonia aspiration [Unknown]
  - Hyperthermia [Unknown]
  - Myoclonus [Unknown]
  - Cardiac murmur [Unknown]
  - Rales [Unknown]
  - Dermatitis [Unknown]
  - Leukocytosis [Unknown]
